FAERS Safety Report 8030888-7 (Version None)
Quarter: 2011Q4

REPORT INFORMATION
  Report Type: 
  Country: None (occurrence: None)
  Receive Date: 20111202
  Receipt Date: 20100923
  Transmission Date: 20120403
  Serious: Yes (Hospitalization)
  Sender: FDA-Public Use
  Company Number: 2010SP050733

PATIENT
  Age: 31 Year
  Sex: Female
  Weight: 96.6162 kg

DRUGS (1)
  1. NUVARING [Suspect]
     Indication: CONTRACEPTION
     Dates: start: 20060201, end: 20060512

REACTIONS (6)
  - THROMBOSIS [None]
  - SLEEP APNOEA SYNDROME [None]
  - MIGRAINE [None]
  - WEIGHT INCREASED [None]
  - DEPRESSION [None]
  - PULMONARY EMBOLISM [None]
